FAERS Safety Report 5050509-5 (Version None)
Quarter: 2006Q3

REPORT INFORMATION
  Report Type: 
  Country: None (occurrence: None)
  Receive Date: 20060707
  Receipt Date: 20060619
  Transmission Date: 20061208
  Serious: Yes (Life-Threatening, Hospitalization)
  Sender: FDA-Public Use
  Company Number: S02-FRA-02174-01

PATIENT
  Age: 34 Year
  Sex: Female

DRUGS (4)
  1. CITALOPRAM HYDROBROMIDE [Suspect]
     Dosage: 40 MG QD PO
     Route: 048
     Dates: end: 20020902
  2. HEPARIN [Suspect]
     Indication: PULMONARY EMBOLISM
     Dosage: 37000 UNITS ONCE IV
     Route: 042
     Dates: start: 20020902, end: 20020902
  3. HEPARIN [Suspect]
     Indication: PULMONARY EMBOLISM
     Dates: start: 20020906
  4. PREVISCAN (FLUINDIONE) [Suspect]
     Dosage: 20 MG ONCE PO
     Route: 048
     Dates: start: 20020902, end: 20020902

REACTIONS (27)
  - ABDOMINAL INJURY [None]
  - ALANINE AMINOTRANSFERASE INCREASED [None]
  - ASCITES [None]
  - ASPARTATE AMINOTRANSFERASE INCREASED [None]
  - BLOOD CALCIUM DECREASED [None]
  - BLOOD CREATINE PHOSPHOKINASE INCREASED [None]
  - BLOOD FIBRINOGEN DECREASED [None]
  - CARDIAC ARREST [None]
  - COAGULATION FACTOR V LEVEL DECREASED [None]
  - COAGULOPATHY [None]
  - CYANOSIS [None]
  - DRUG INTERACTION [None]
  - HEART RATE INCREASED [None]
  - HEPATIC HAEMORRHAGE [None]
  - HEPATIC TRAUMA [None]
  - HYPERTHERMIA [None]
  - HYPOTENSION [None]
  - LOSS OF CONSCIOUSNESS [None]
  - MALAISE [None]
  - OVERDOSE [None]
  - PERITONEAL HAEMORRHAGE [None]
  - PROTHROMBIN LEVEL DECREASED [None]
  - PULMONARY EMBOLISM [None]
  - SHOCK [None]
  - SHOCK HAEMORRHAGIC [None]
  - TACHYPNOEA [None]
  - VENTRICULAR HYPERKINESIA [None]
